FAERS Safety Report 7354222-0 (Version None)
Quarter: 2011Q1

REPORT INFORMATION
  Report Type: 
  Country: None (occurrence: None)
  Receive Date: 20110308
  Receipt Date: 20080617
  Transmission Date: 20110831
  Serious: Yes (Hospitalization)
  Sender: FDA-Public Use
  Company Number: 843441

PATIENT
  Age: 52 Year
  Sex: Female

DRUGS (5)
  1. (MABTHERA) [Suspect]
     Indication: CHRONIC LYMPHOCYTIC LEUKAEMIA
     Dosage: 570 MG MILLIGRAM(S) INTRAVENOUS (NOT OTHERWISE SPECIFIED)
     Route: 042
     Dates: start: 20070215, end: 20070415
  2. (ENDOXAN-ASTA) [Suspect]
     Indication: CHRONIC LYMPHOCYTIC LEUKAEMIA
     Dosage: 910 MG MILLIGRAM(S) INTRAVENOUS (NOT OTHERWISE SPECIFIED)
     Route: 042
     Dates: start: 20070215, end: 20070415
  3. PENTOSTATIN [Suspect]
     Indication: CHRONIC LYMPHOCYTIC LEUKAEMIA
     Dosage: 6 MILLIGRAM(S),INTRAVENOUS (NOT OTHERWISE SPECIFIED)
     Route: 042
     Dates: start: 20070215, end: 20070415
  4. (ZELITREX) [Concomitant]
  5. BACTRIM [Concomitant]

REACTIONS (3)
  - INTERSTITIAL LUNG DISEASE [None]
  - BRONCHITIS [None]
  - HYPOXIA [None]
